FAERS Safety Report 4786220-5 (Version None)
Quarter: 2005Q3

REPORT INFORMATION
  Report Type: 
  Country: None (occurrence: None)
  Receive Date: 20050930
  Receipt Date: 20050917
  Transmission Date: 20060218
  Serious: Yes (Other)
  Sender: FDA-Public Use
  Company Number: 2005120714

PATIENT
  Age: 59 Year
  Sex: Female
  Weight: 95.2554 kg

DRUGS (2)
  1. BENADRYL [Suspect]
     Indication: HYPERSENSITIVITY
  2. ALL OTHER THERAPEUTIC PRODUCTS (ALL OTHER THERAPEUTIC PRODUCTS) [Suspect]
     Indication: URTICARIA

REACTIONS (8)
  - ARTHROPOD STING [None]
  - BITE [None]
  - FEELING COLD [None]
  - MALAISE [None]
  - NERVOUSNESS [None]
  - THINKING ABNORMAL [None]
  - TONGUE DISORDER [None]
  - URTICARIA [None]
